FAERS Safety Report 24670751 (Version 1)
Quarter: 2024Q4

REPORT INFORMATION
  Report Type: Report from Study
  Country: US (occurrence: US)
  Receive Date: 20241127
  Receipt Date: 20241127
  Transmission Date: 20250115
  Serious: Yes (Other)
  Sender: NOVARTIS
  Company Number: US-002147023-NVSC2024US162355

PATIENT
  Sex: Female

DRUGS (1)
  1. KESIMPTA [Suspect]
     Active Substance: OFATUMUMAB
     Indication: Product used for unknown indication
     Dosage: 20 MG, QMO
     Route: 058
     Dates: start: 20240702

REACTIONS (7)
  - Breast cancer stage II [Unknown]
  - Memory impairment [Unknown]
  - Blood glucose decreased [Unknown]
  - Pain in extremity [Unknown]
  - Fatigue [Unknown]
  - Anxiety [Unknown]
  - Gait disturbance [Unknown]
